FAERS Safety Report 4339991-6 (Version None)
Quarter: 2004Q2

REPORT INFORMATION
  Report Type: 
  Country: None (occurrence: None)
  Receive Date: 20040414
  Receipt Date: 20040414
  Transmission Date: 20050107
  Serious: Yes (Other)
  Sender: FDA-Public Use
  Company Number: None

PATIENT
  Sex: Female

DRUGS (2)
  1. RISPERDAL [Suspect]
     Indication: AGITATION
     Dosage: 2MG PO BID
     Route: 048
     Dates: start: 20040329, end: 20040330
  2. RISPERDAL [Suspect]
     Indication: PSYCHOTIC DISORDER
     Dosage: 2MG PO BID
     Route: 048
     Dates: start: 20040329, end: 20040330

REACTIONS (1)
  - EXTRAPYRAMIDAL DISORDER [None]
